FAERS Safety Report 6638029-5 (Version None)
Quarter: 2010Q1

REPORT INFORMATION
  Report Type: 
  Country: None (occurrence: None)
  Receive Date: 20100317
  Receipt Date: 20100305
  Transmission Date: 20100710
  Serious: Yes (Other)
  Sender: FDA-Public Use
  Company Number: JP-PFIZER INC-2010033607

PATIENT
  Sex: Male

DRUGS (2)
  1. ZOLOFT [Suspect]
     Indication: PANIC DISORDER
     Route: 048
  2. REMERON [Concomitant]
     Dosage: UNK
     Route: 048

REACTIONS (3)
  - FEELING COLD [None]
  - NAUSEA [None]
  - SENSE OF OPPRESSION [None]
